FAERS Safety Report 17461407 (Version 1)
Quarter: 2020Q1

REPORT INFORMATION
  Report Type: Spontaneous
  Country: FR (occurrence: FR)
  Receive Date: 20200226
  Receipt Date: 20200226
  Transmission Date: 20200409
  Serious: Yes (Life-Threatening, Hospitalization, Disabling, Other)
  Sender: FDA-Public Use
  Company Number: FR-PFIZER INC-2020081412

PATIENT
  Age: 37 Year
  Sex: Female

DRUGS (24)
  1. OMEPRAZOLE. [Suspect]
     Active Substance: OMEPRAZOLE
     Dosage: UNK
     Dates: start: 20180108
  2. ERYTHROMYCIN. [Suspect]
     Active Substance: ERYTHROMYCIN
     Dosage: UNK
     Dates: start: 20180511
  3. METRONIDAZOLE. [Suspect]
     Active Substance: METRONIDAZOLE
     Dosage: UNK
     Dates: start: 20180326
  4. ALVERINE CITRATE/SIMETICONE [Suspect]
     Active Substance: ALVERINE CITRATE\DIMETHICONE
     Dosage: UNK
     Dates: start: 20180320
  5. IBUPROFEN ZENTIVA [Suspect]
     Active Substance: IBUPROFEN
  6. PARACETAMOL [Suspect]
     Active Substance: ACETAMINOPHEN
     Dosage: UNK
     Dates: start: 20180412
  7. TRIMETHOPRIM SULFAMETHOXAZOLE [Suspect]
     Active Substance: SULFAMETHOXAZOLE\TRIMETHOPRIM
     Dosage: UNK
     Dates: start: 20180328
  8. ZINC SALT NOS [Suspect]
     Active Substance: ZINC
     Dosage: UNK
     Dates: start: 20180511
  9. NICOTINE. [Suspect]
     Active Substance: NICOTINE
     Dosage: UNK
     Dates: start: 20180108
  10. TRIMEBUTINE MALEATE [Suspect]
     Active Substance: TRIMEBUTINE MALEATE
     Dosage: UNK
     Dates: start: 20180326
  11. CODEINE [Suspect]
     Active Substance: CODEINE
     Dosage: UNK
     Route: 065
     Dates: start: 20180707
  12. CARBO MEDICINALIS [Suspect]
     Active Substance: ACTIVATED CHARCOAL
     Dosage: UNK
     Dates: start: 20180320
  13. PARACETAMOL [Suspect]
     Active Substance: ACETAMINOPHEN
     Dosage: UNK
  14. BECLOMETHASONE [BECLOMETASONE] [Suspect]
     Active Substance: BECLOMETHASONE
     Dosage: UNK
     Dates: start: 20180630
  15. PARACETAMOL [Suspect]
     Active Substance: ACETAMINOPHEN
     Dosage: UNK
     Dates: start: 20180707
  16. TIXOCORTOL PIVALATE [Suspect]
     Active Substance: TIXOCORTOL PIVALATE
     Dosage: UNK
     Dates: start: 20180511
  17. CODEINE [Suspect]
     Active Substance: CODEINE
     Indication: COUGH
     Dosage: UNK
     Dates: start: 20180630
  18. ALPRAZOLAM. [Suspect]
     Active Substance: ALPRAZOLAM
     Dosage: UNK
     Dates: start: 20180320
  19. TIXOCORTOL PIVALATE [Suspect]
     Active Substance: TIXOCORTOL PIVALATE
     Dosage: UNK
     Dates: start: 20180630
  20. NALTREXON [Suspect]
     Active Substance: NALTREXONE
     Dosage: UNK
     Dates: start: 20180320
  21. DEXTROMETHORPHANE [Suspect]
     Active Substance: DEXTROMETHORPHAN
     Dosage: UNK
     Dates: start: 20180630
  22. METHOCARBAMOL. [Suspect]
     Active Substance: METHOCARBAMOL
     Dosage: UNK
     Dates: start: 20180412
  23. LACTOBACILLUS ACIDOPHILUS [Suspect]
     Active Substance: LACTOBACILLUS ACIDOPHILUS
     Dosage: UNK
     Dates: start: 20180403
  24. SULBUTIAMINE [Suspect]
     Active Substance: SULBUTIAMINE
     Dosage: UNK
     Dates: start: 20180326

REACTIONS (5)
  - Necrosis ischaemic [Recovered/Resolved with Sequelae]
  - Pneumonia streptococcal [Recovered/Resolved]
  - Septic shock [Recovered/Resolved with Sequelae]
  - Beta haemolytic streptococcal infection [Recovered/Resolved]
  - Loss of consciousness [Recovered/Resolved]
